FAERS Safety Report 10618049 (Version 12)
Quarter: 2015Q3

REPORT INFORMATION
  Report Type: Report from Study
  Country: CA (occurrence: CA)
  Receive Date: 20141202
  Receipt Date: 20150721
  Transmission Date: 20151125
  Serious: Yes (Other)
  Sender: FDA-Public Use
  Company Number: CA-ROCHE-1147941

PATIENT
  Age: 45 Year
  Sex: Female
  Weight: 91 kg

DRUGS (19)
  1. NEXIUM [Concomitant]
     Active Substance: ESOMEPRAZOLE MAGNESIUM
  2. ACTEMRA [Suspect]
     Active Substance: TOCILIZUMAB
     Route: 042
     Dates: start: 20130409
  3. ACTEMRA [Suspect]
     Active Substance: TOCILIZUMAB
     Route: 042
     Dates: start: 20140109
  4. FOSAVANCE [Concomitant]
     Active Substance: ALENDRONATE SODIUM\CHOLECALCIFEROL
     Route: 065
  5. FOLIC ACID. [Concomitant]
     Active Substance: FOLIC ACID
     Route: 065
  6. ACTEMRA [Suspect]
     Active Substance: TOCILIZUMAB
     Route: 042
     Dates: start: 20120813
  7. ACTEMRA [Suspect]
     Active Substance: TOCILIZUMAB
     Dosage: CONTINUED AS 8 MG/KG
     Route: 042
     Dates: start: 20120920
  8. ACTEMRA [Suspect]
     Active Substance: TOCILIZUMAB
     Route: 042
     Dates: start: 20140515
  9. ACTEMRA [Suspect]
     Active Substance: TOCILIZUMAB
     Indication: RHEUMATOID ARTHRITIS
     Route: 042
     Dates: start: 20110922
  10. ACTEMRA [Suspect]
     Active Substance: TOCILIZUMAB
     Route: 042
     Dates: start: 20120209
  11. ACTEMRA [Suspect]
     Active Substance: TOCILIZUMAB
     Route: 042
     Dates: start: 20111215
  12. ACTEMRA [Suspect]
     Active Substance: TOCILIZUMAB
     Route: 042
     Dates: start: 20120503
  13. TYLENOL WITH CODEINE [Concomitant]
     Active Substance: ACETAMINOPHEN\CODEINE PHOSPHATE
     Route: 065
  14. ACTEMRA [Suspect]
     Active Substance: TOCILIZUMAB
     Route: 042
     Dates: start: 20140220
  15. MELOXICAM. [Concomitant]
     Active Substance: MELOXICAM
  16. ACTEMRA [Suspect]
     Active Substance: TOCILIZUMAB
     Route: 042
     Dates: start: 20120310
  17. ACTEMRA [Suspect]
     Active Substance: TOCILIZUMAB
     Route: 042
     Dates: start: 20150129
  18. METHOTREXATE [Concomitant]
     Active Substance: METHOTREXATE
     Route: 048
  19. AMITRIPTYLINE [Concomitant]
     Active Substance: AMITRIPTYLINE

REACTIONS (26)
  - Dyspepsia [Not Recovered/Not Resolved]
  - Pharyngitis [Recovering/Resolving]
  - Nausea [Unknown]
  - Oesophageal disorder [Not Recovered/Not Resolved]
  - Headache [Unknown]
  - Heart rate increased [Unknown]
  - Insomnia [Unknown]
  - Arthralgia [Not Recovered/Not Resolved]
  - Poor quality sleep [Unknown]
  - Insomnia [Unknown]
  - Weight increased [Not Recovered/Not Resolved]
  - Oropharyngeal pain [Unknown]
  - Arthralgia [Unknown]
  - Arthralgia [Not Recovered/Not Resolved]
  - Vomiting [Unknown]
  - Infusion related reaction [Unknown]
  - Decreased appetite [Unknown]
  - Diarrhoea [Unknown]
  - Malaise [Unknown]
  - Urinary tract infection [Recovered/Resolved]
  - Arthralgia [Recovering/Resolving]
  - Arthritis [Unknown]
  - Nervousness [Unknown]
  - Drug ineffective [Unknown]
  - Pyrexia [Unknown]
  - Dizziness [Unknown]

NARRATIVE: CASE EVENT DATE: 20121018
